FAERS Safety Report 19000615 (Version 1)
Quarter: 2021Q1

REPORT INFORMATION
  Report Type: Spontaneous
  Country: US (occurrence: US)
  Receive Date: 20210311
  Receipt Date: 20210311
  Transmission Date: 20210420
  Serious: Yes (Other)
  Sender: FDA-Public Use
  Company Number: None

PATIENT
  Age: 65 Year
  Sex: Female
  Weight: 73.03 kg

DRUGS (3)
  1. MUPIROCIN OINTMENT USP 2% [Suspect]
     Active Substance: MUPIROCIN
     Indication: ARTHROPOD BITE
     Route: 061
     Dates: start: 20200412
  2. TRIAMCINOLONE ACETONIDE OINTMENT USP 0.1% [Suspect]
     Active Substance: TRIAMCINOLONE ACETONIDE
     Route: 061
  3. KEFLEX [Suspect]
     Active Substance: CEPHALEXIN
     Route: 048

REACTIONS (5)
  - Peripheral swelling [None]
  - Urticaria [None]
  - Swelling [None]
  - Rash erythematous [None]
  - Adverse drug reaction [None]

NARRATIVE: CASE EVENT DATE: 202012
